FAERS Safety Report 18520249 (Version 2)
Quarter: 2021Q1

REPORT INFORMATION
  Report Type: Spontaneous
  Country: US (occurrence: US)
  Receive Date: 20201119
  Receipt Date: 20210203
  Transmission Date: 20210419
  Serious: No
  Sender: FDA-Public Use
  Company Number: US-GW PHARMA-202011USGW03924

PATIENT

DRUGS (2)
  1. EPIDIOLEX [Suspect]
     Active Substance: CANNABIDIOL
     Indication: EPILEPSY
     Dosage: 16.87 MG/KG, 300 MG QD (100 MG IN AM AND 200 MG AT BEDTIME) (FIRST SHIPPED 17?JUL?2019)
     Route: 048
     Dates: start: 201907, end: 2020
  2. EPIDIOLEX [Suspect]
     Active Substance: CANNABIDIOL
     Dosage: 25.30 MG/KG/DAY, 450 MILLIGRAM, QD (100 MG EVERY MORNING AND 350 MG AT BEDTIME) (DOSE INCREASED)
     Route: 048
     Dates: start: 202007

REACTIONS (1)
  - Prescribed overdose [Unknown]

NARRATIVE: CASE EVENT DATE: 202007
